FAERS Safety Report 7922885-4 (Version None)
Quarter: 2011Q4

REPORT INFORMATION
  Report Type: 
  Country: None (occurrence: None)
  Receive Date: 20111117
  Receipt Date: 20110816
  Transmission Date: 20120403
  Serious: No
  Sender: FDA-Public Use
  Company Number: US-ALLERGAN-1111050US

PATIENT
  Age: 54 Year
  Sex: Female

DRUGS (1)
  1. LASTACAFT [Suspect]
     Indication: HYPERSENSITIVITY
     Dosage: 2 GTT, QD
     Route: 047
     Dates: start: 20110811, end: 20110812

REACTIONS (3)
  - VISUAL ACUITY REDUCED [None]
  - OCULAR DISCOMFORT [None]
  - EYE IRRITATION [None]
